FAERS Safety Report 7353422-3 (Version None)
Quarter: 2011Q1

REPORT INFORMATION
  Report Type: 
  Country: None (occurrence: None)
  Receive Date: 20110315
  Receipt Date: 20110308
  Transmission Date: 20110831
  Serious: Yes (Hospitalization)
  Sender: FDA-Public Use
  Company Number: FR-PFIZER INC-2011050160

PATIENT
  Age: 56 Year
  Sex: Female

DRUGS (8)
  1. TAZOCILLINE [Concomitant]
     Dosage: 4 G, 3X/DAY
     Route: 042
     Dates: start: 20101111
  2. VFEND [Concomitant]
     Dosage: UNK
     Dates: start: 20101001
  3. CYTARABINE [Suspect]
     Dosage: 1550 MG, 2X/DAY
     Dates: start: 20101116, end: 20101117
  4. VANCOMYCIN HCL [Concomitant]
     Dosage: 1 G, 2X/DAY
     Route: 042
     Dates: start: 20101111
  5. CYTARABINE [Suspect]
     Indication: ACUTE MYELOID LEUKAEMIA
     Dosage: 305 MG, 1X/DAY
     Route: 042
     Dates: start: 20101102, end: 20101115
  6. DOXORUBICIN [Concomitant]
     Indication: ACUTE MYELOID LEUKAEMIA
     Dosage: 60 MG
     Dates: start: 20110101
  7. ZAVEDOS [Suspect]
     Indication: ACUTE MYELOID LEUKAEMIA
     Dosage: 12.2 MG, 1X/DAY
     Route: 042
     Dates: start: 20101104, end: 20101117
  8. CYTARABINE [Suspect]
     Dosage: 16 G
     Dates: start: 20110101

REACTIONS (4)
  - TOXIC SKIN ERUPTION [None]
  - DERMATITIS EXFOLIATIVE [None]
  - DERMATITIS BULLOUS [None]
  - LUNG DISORDER [None]
